FAERS Safety Report 16272412 (Version 1)
Quarter: 2019Q2

REPORT INFORMATION
  Report Type: Spontaneous
  Country: CN (occurrence: CN)
  Receive Date: 20190503
  Receipt Date: 20190503
  Transmission Date: 20190711
  Serious: Yes (Other)
  Sender: FDA-Public Use
  Company Number: CN-GILEAD-2019-0405578

PATIENT
  Age: 58 Year
  Sex: Male

DRUGS (2)
  1. ALENDRONATE [Concomitant]
     Active Substance: ALENDRONATE SODIUM
     Indication: OSTEOPOROSIS
     Dosage: 70 MG, Q1WK
     Route: 065
     Dates: end: 201510
  2. HEPSERA [Suspect]
     Active Substance: ADEFOVIR DIPIVOXIL
     Indication: CHRONIC HEPATITIS B
     Dosage: LOW DOSE, UNK
     Route: 065
     Dates: end: 201407

REACTIONS (1)
  - Hypophosphataemic osteomalacia [Not Recovered/Not Resolved]
